FAERS Safety Report 15406546 (Version 1)
Quarter: 2018Q3

REPORT INFORMATION
  Report Type: Spontaneous
  Country: US (occurrence: US)
  Receive Date: 20180920
  Receipt Date: 20180920
  Transmission Date: 20181010
  Serious: Yes (Hospitalization, Other)
  Sender: FDA-Public Use
  Company Number: US-ALKEM LABORATORIES LIMITED-US-ALKEM-2018-07411

PATIENT
  Age: 47 Year
  Sex: Male

DRUGS (2)
  1. AMLODIPINE BESYLATE. [Suspect]
     Active Substance: AMLODIPINE BESYLATE
     Indication: PRODUCT USED FOR UNKNOWN INDICATION
     Dosage: 400 MG, UNK
     Route: 065
  2. LISINOPRIL. [Suspect]
     Active Substance: LISINOPRIL
     Indication: PRODUCT USED FOR UNKNOWN INDICATION
     Dosage: 200 MG, UNK
     Route: 065

REACTIONS (7)
  - Suicide attempt [Unknown]
  - Lactic acidosis [Recovering/Resolving]
  - Pulmonary oedema [Recovering/Resolving]
  - Acute kidney injury [Recovering/Resolving]
  - Overdose [Unknown]
  - Hypoxia [Recovering/Resolving]
  - Blood creatinine increased [Recovering/Resolving]
